FAERS Safety Report 5099836-6 (Version None)
Quarter: 2006Q3

REPORT INFORMATION
  Report Type: 
  Country: None (occurrence: None)
  Receive Date: 20060908
  Receipt Date: 20060817
  Transmission Date: 20061208
  Serious: Yes (Hospitalization)
  Sender: FDA-Public Use
  Company Number: US-AMGEN-US190482

PATIENT
  Sex: Female

DRUGS (2)
  1. ENBREL [Suspect]
     Indication: RHEUMATOID ARTHRITIS
     Route: 058
     Dates: start: 20000223
  2. METHOTREXATE [Concomitant]
     Route: 048
     Dates: start: 20000101

REACTIONS (6)
  - DIABETES MELLITUS INSULIN-DEPENDENT [None]
  - FALL [None]
  - FRACTURED SACRUM [None]
  - INJURY [None]
  - SKIN LACERATION [None]
  - WOUND INFECTION [None]
